FAERS Safety Report 8824382 (Version 2)
Quarter: 2012Q4

REPORT INFORMATION
  Report Type: 
  Country: US (occurrence: US)
  Receive Date: 20121004
  Receipt Date: 20121015
  Transmission Date: 20130627
  Serious: Yes (Hospitalization, Other)
  Sender: FDA-Public Use
  Company Number: US-BAYER-2012-102690

PATIENT
  Age: 31 Year
  Sex: Female

DRUGS (8)
  1. YASMIN [Suspect]
     Indication: CONTRACEPTION
     Dosage: UNK
     Dates: start: 20040419, end: 20081107
  2. YAZ [Suspect]
  3. OCELLA [Suspect]
  4. MIRENA [Concomitant]
  5. FLONASE [Concomitant]
     Dosage: UNK UNK, PRN
  6. EFFEXOR [Concomitant]
  7. LORTAB [Concomitant]
  8. TYLENOL [Concomitant]

REACTIONS (11)
  - Pelvic venous thrombosis [Recovering/Resolving]
  - Deep vein thrombosis [Recovering/Resolving]
  - Deep vein thrombosis [Recovering/Resolving]
  - Thrombophlebitis superficial [None]
  - Chest pain [None]
  - Pyrexia [Recovering/Resolving]
  - Pain [None]
  - Injury [Recovering/Resolving]
  - General physical health deterioration [Recovering/Resolving]
  - Anxiety [None]
  - Emotional distress [None]
